FAERS Safety Report 8924853 (Version 1)
Quarter: 2012Q4

REPORT INFORMATION
  Report Type: 
  Country: US (occurrence: US)
  Receive Date: 20121126
  Receipt Date: 20121126
  Transmission Date: 20130627
  Serious: Yes (Hospitalization)
  Sender: FDA-Public Use
  Company Number: US-BAYER-2012-121465

PATIENT
  Age: 33 Year
  Sex: Female
  Weight: 120.2 kg

DRUGS (43)
  1. YAZ [Suspect]
  2. GIANVI [Suspect]
  3. TAMIFLU [Concomitant]
     Dosage: 75 mg, UNK
  4. PROMETHAZINE [Concomitant]
     Dosage: 25 mg, UNK
  5. MECLIZINE [Concomitant]
     Dosage: 25 mg, UNK
  6. HYDROCODONE W/ACETAMINOPHEN [Concomitant]
     Dosage: 10-325 mg
  7. SUMATRIPTAN SUCCINATE [Concomitant]
     Dosage: 100 mg, UNK
  8. LEVAQUIN [Concomitant]
     Dosage: 500 mg, UNK
  9. LEVAQUIN [Concomitant]
     Dosage: 250 mg, UNK
  10. LEVAQUIN [Concomitant]
     Dosage: 750 mg, UNK
  11. CHLORPHENIRAMINE W/HYDROCODONE [Concomitant]
  12. NAPROXEN SODIUM [Concomitant]
     Dosage: 550 mg, UNK
  13. METHOCARBAMOL [Concomitant]
     Dosage: 500 mg, UNK
  14. BUTORPHANOL [Concomitant]
     Dosage: 10 mg/ml Spray
  15. AZITHROMYCIN [Concomitant]
     Dosage: 600 mg, UNK
  16. FROVA [Concomitant]
     Dosage: 2.5 mg, UNK
  17. ONDANSETRON [Concomitant]
     Dosage: 8 mg, UNK
  18. DIPHENOXYLATE/ATROPINE [Concomitant]
  19. FUROSEMIDE [Concomitant]
     Dosage: 40 mg, UNK
  20. NADOLOL [Concomitant]
     Dosage: 80 mg, BID
  21. SUBOXONE [Concomitant]
     Dosage: 8-2 mg
     Route: 060
  22. ZITHROMAX [Concomitant]
     Dosage: 500 mg, UNK
     Route: 042
     Dates: start: 20110406
  23. ROCEPHIN [Concomitant]
     Dosage: 1 g, UNK
     Route: 042
     Dates: start: 20110406
  24. ASTELIN [Concomitant]
     Dosage: 137 ?g, 2 puffs
     Dates: start: 20110406
  25. HUMIBID [Concomitant]
     Dosage: 600 mg, BID
     Dates: start: 20110406
  26. AMBIEN [Concomitant]
     Indication: INSOMNIA
     Dosage: 10 mg, PRN
     Dates: start: 20110406
  27. PULMICORT RESPULES [Concomitant]
     Dosage: 0.5 mg, UNK
     Route: 045
     Dates: start: 20110406
  28. NOVOLOG [Concomitant]
     Dosage: Sliding scale
     Route: 058
     Dates: start: 20110406
  29. CLARITIN [Concomitant]
     Dosage: 10 mg, daily
     Dates: start: 20110407
  30. FLEXERIL [Concomitant]
     Indication: PAIN
     Dosage: 10 mg, PRN
     Route: 048
     Dates: start: 20110407
  31. NORCO [Concomitant]
     Indication: PAIN
     Dosage: 10 mg, PRN
     Route: 048
     Dates: start: 20110407
  32. ADVAIR DISKUS [Concomitant]
     Dosage: 250/50 mg 1 Puff 2 times a day
  33. CELEXA [Concomitant]
     Dosage: 40 mg, daily
     Route: 048
  34. FOLIC ACID [Concomitant]
     Dosage: 1 [tablet] daily
     Route: 048
  35. XOPENEX [Concomitant]
     Indication: SHORTNESS OF BREATH
     Dosage: 1.25 mg, Q4HR, as needed
  36. XYZAL [Concomitant]
     Dosage: 5 mg, daily
     Route: 048
  37. METHOTREXATE [Concomitant]
     Dosage: 2.5 mg 8 [tablets] weekly on Thursday
     Route: 048
  38. ENBREL [Concomitant]
     Dosage: 50 weekly on Thursday
  39. METHYLPREDNISOLON [Concomitant]
     Dosage: 8 mg daily times 1 dose left;
     Route: 048
  40. BENICAR HCT [Concomitant]
     Dosage: 40/12.5 mg daily
     Route: 048
  41. PROTONIX [Concomitant]
     Dosage: 40 mg, daily while taking steroids
     Route: 048
  42. SPIRIVA [Concomitant]
     Dosage: 1 puff(s),daily
  43. ADVAIR [Concomitant]

REACTIONS (1)
  - Deep vein thrombosis [None]
